FAERS Safety Report 15524373 (Version 3)
Quarter: 2019Q3

REPORT INFORMATION
  Report Type: Spontaneous
  Country: GB (occurrence: GB)
  Receive Date: 20181019
  Receipt Date: 20190731
  Transmission Date: 20191004
  Serious: Yes (Death, Other)
  Sender: FDA-Public Use
  Company Number: PHHY2018GB131466

PATIENT
  Age: 42 Year
  Sex: Female

DRUGS (8)
  1. SUBUTEX [Suspect]
     Active Substance: BUPRENORPHINE HYDROCHLORIDE
     Indication: ANALGESIC THERAPY
     Dosage: UNK
     Route: 065
  2. GABAPENTIN. [Suspect]
     Active Substance: GABAPENTIN
     Indication: PAIN IN EXTREMITY
     Dosage: UNK
     Route: 065
  3. GABAPENTIN. [Suspect]
     Active Substance: GABAPENTIN
     Indication: BACK PAIN
  4. MIRTAZAPINE. [Suspect]
     Active Substance: MIRTAZAPINE
     Indication: DEPRESSION
     Dosage: UNK
     Route: 065
  5. DIAZEPAM. [Suspect]
     Active Substance: DIAZEPAM
     Indication: ANALGESIC THERAPY
     Dosage: UNK (IN THE THERAPEUTIC RANGE)
     Route: 065
  6. TRAMADOL. [Suspect]
     Active Substance: TRAMADOL
     Indication: PAIN IN EXTREMITY
     Dosage: 400 MG, QD (100 MG, 4X/DAY)
     Route: 065
  7. MORPHINE [Suspect]
     Active Substance: MORPHINE
     Indication: ANALGESIC THERAPY
     Dosage: UNK (FATAL RANGE)
     Route: 065
  8. TRAMADOL. [Suspect]
     Active Substance: TRAMADOL
     Indication: BACK PAIN

REACTIONS (9)
  - Toxicity to various agents [Fatal]
  - Feeling drunk [Fatal]
  - Coma [Unknown]
  - Snoring [Fatal]
  - Drug diversion [Fatal]
  - Accidental overdose [Fatal]
  - Headache [Fatal]
  - Dissociation [Fatal]
  - Hallucination [Fatal]

NARRATIVE: CASE EVENT DATE: 201804
